FAERS Safety Report 5155711-X (Version None)
Quarter: 2006Q4

REPORT INFORMATION
  Report Type: 
  Country: None (occurrence: None)
  Receive Date: 20061114
  Receipt Date: 20061030
  Transmission Date: 20070319
  Serious: Yes (Death)
  Sender: FDA-Public Use
  Company Number: 2005173435

PATIENT
  Age: 74 Year
  Sex: Female
  Weight: 83.3 kg

DRUGS (1)
  1. SUTENT [Suspect]
     Indication: GASTROINTESTINAL STROMAL TUMOUR
     Dosage: 50 MG (25 MG, 2 IN 1 D), ORAL
     Route: 048
     Dates: start: 20051018, end: 20051224

REACTIONS (3)
  - CANDIDIASIS [None]
  - FALL [None]
  - UROSEPSIS [None]
